FAERS Safety Report 8590550 (Version 3)
Quarter: 2013Q3

REPORT INFORMATION
  Report Type: Spontaneous
  Country: US (occurrence: US)
  Receive Date: 20120601
  Receipt Date: 20130808
  Transmission Date: 20140515
  Serious: Yes (Hospitalization, Other)
  Sender: FDA-Public Use
  Company Number: US-BAYER-2012-053677

PATIENT
  Age: 35 Year
  Sex: Female
  Weight: 72.11 kg

DRUGS (2)
  1. MIRENA [Suspect]
     Indication: CONTRACEPTION
     Dosage: 20 MCG/24HR, CONT
     Route: 015
     Dates: start: 20070121, end: 20120404
  2. MIRENA [Suspect]
     Indication: CONTRACEPTION
     Dosage: 20 MCG/24HR, CONT
     Route: 015
     Dates: start: 20120404

REACTIONS (6)
  - Vaginal haemorrhage [None]
  - Pregnancy with contraceptive device [Recovered/Resolved]
  - Pain [None]
  - Device dislocation [None]
  - Breech presentation [None]
  - Device misuse [None]
